FAERS Safety Report 24253670 (Version 1)
Quarter: 2024Q3

REPORT INFORMATION
  Report Type: Report from Study
  Country: CA (occurrence: CA)
  Receive Date: 20240827
  Receipt Date: 20240827
  Transmission Date: 20241017
  Serious: Yes (Death, Hospitalization, Other)
  Sender: GLAXOSMITHKLINE
  Company Number: CA-GLAXOSMITHKLINE-CA2023AMR090543

PATIENT

DRUGS (7)
  1. MEPOLIZUMAB [Suspect]
     Active Substance: MEPOLIZUMAB
     Indication: Asthma
     Dosage: 100 MG, Q4W
     Route: 058
     Dates: start: 20230406
  2. ALVESCO [Suspect]
     Active Substance: CICLESONIDE
     Indication: Product used for unknown indication
     Dosage: 2 PUFF(S), BID,200MCG
  3. OLODATEROL HYDROCHLORIDE\TIOTROPIUM BROMIDE MONOHYDRATE [Concomitant]
     Active Substance: OLODATEROL HYDROCHLORIDE\TIOTROPIUM BROMIDE MONOHYDRATE
     Indication: Product used for unknown indication
     Dosage: 2 PUFF(S), QD, 2.5 MCG
  4. VENTOLIN [Concomitant]
     Active Substance: ALBUTEROL SULFATE
     Indication: Product used for unknown indication
     Dosage: 100 UG OR 100 MCG
  5. ATROVENT [Concomitant]
     Active Substance: IPRATROPIUM BROMIDE
     Indication: Product used for unknown indication
     Dosage: 20 UG OR 20 MCG
  6. PREDNISONE [Concomitant]
     Active Substance: PREDNISONE
     Indication: Product used for unknown indication
     Dosage: 5 MG, QD
  7. FLOVENT [Concomitant]
     Active Substance: FLUTICASONE PROPIONATE
     Indication: Product used for unknown indication
     Dosage: 2 PUFF(S), BID (250MCG 2 PUFFS BID)

REACTIONS (5)
  - Death [Fatal]
  - Pneumonia [Unknown]
  - Oral mucosal blistering [Recovering/Resolving]
  - Wrong technique in device usage process [Unknown]
  - Incorrect dose administered [Unknown]
